FAERS Safety Report 7236039-0 (Version None)
Quarter: 2011Q1

REPORT INFORMATION
  Report Type: 
  Country: None (occurrence: None)
  Receive Date: 20110120
  Receipt Date: 20110117
  Transmission Date: 20110831
  Serious: Yes (Other)
  Sender: FDA-Public Use
  Company Number: FR-BRISTOL-MYERS SQUIBB COMPANY-15491814

PATIENT
  Age: 37 Year
  Sex: Male

DRUGS (1)
  1. APROVEL [Suspect]
     Route: 065

REACTIONS (2)
  - ANGIOEDEMA [None]
  - OCCUPATIONAL EXPOSURE TO DRUG [None]
